FAERS Safety Report 11465943 (Version 2)
Quarter: 2015Q4

REPORT INFORMATION
  Report Type: Spontaneous
  Country: GB (occurrence: GB)
  Receive Date: 20150907
  Receipt Date: 20151006
  Transmission Date: 20160304
  Serious: Yes (Other)
  Sender: FDA-Public Use
  Company Number: GB-AMGEN-GBRSP2015089136

PATIENT
  Age: 67 Year
  Sex: Female

DRUGS (2)
  1. METHOTREXATE SODIUM. [Suspect]
     Active Substance: METHOTREXATE SODIUM
     Indication: PRODUCT USED FOR UNKNOWN INDICATION
     Dosage: 20 MG, WEEKLY (ON MONDAYS)
     Route: 065
  2. ENBREL [Suspect]
     Active Substance: ETANERCEPT
     Indication: RHEUMATOID ARTHRITIS
     Dosage: 50 MG, UNK
     Route: 065
     Dates: start: 20150820

REACTIONS (8)
  - Eye swelling [Unknown]
  - Face injury [Unknown]
  - Injection site bruising [Unknown]
  - Pelvic fracture [Unknown]
  - Eye contusion [Unknown]
  - Fall [Recovering/Resolving]
  - Liver function test abnormal [Unknown]
  - Pain [Unknown]
